FAERS Safety Report 13737469 (Version 1)
Quarter: 2017Q3

REPORT INFORMATION
  Report Type: Spontaneous
  Country: FR (occurrence: FR)
  Receive Date: 20170710
  Receipt Date: 20170710
  Transmission Date: 20171127
  Serious: Yes (Other)
  Sender: FDA-Public Use
  Company Number: FR-FRESENIUS KABI-FK201705855

PATIENT
  Age: 65 Year
  Sex: Male

DRUGS (2)
  1. BACTRIM [Suspect]
     Active Substance: SULFAMETHOXAZOLE\TRIMETHOPRIM
     Indication: SEPTIC SHOCK
     Route: 042
     Dates: start: 20170610, end: 20170619
  2. CLINDAMYCIN KABI (NOT SPECIFIED) [Suspect]
     Active Substance: CLINDAMYCIN PHOSPHATE
     Indication: SEPTIC SHOCK
     Route: 042
     Dates: start: 20170610, end: 20170619

REACTIONS (1)
  - Hyperkalaemia [Recovering/Resolving]

NARRATIVE: CASE EVENT DATE: 20170617
